FAERS Safety Report 7189987-4 (Version None)
Quarter: 2010Q4

REPORT INFORMATION
  Report Type: 
  Country: None (occurrence: None)
  Receive Date: 20101223
  Receipt Date: 20101214
  Transmission Date: 20110411
  Serious: Yes (Hospitalization)
  Sender: FDA-Public Use
  Company Number: MX-JNJFOC-20101205916

PATIENT
  Age: 48 Year
  Sex: Male

DRUGS (1)
  1. REMICADE [Suspect]
     Indication: ANKYLOSING SPONDYLITIS
     Dosage: 3 VIALS  1ST DOSE
     Route: 042

REACTIONS (2)
  - ANAEMIA [None]
  - GASTRIC ULCER [None]
